FAERS Safety Report 12566207 (Version 1)
Quarter: 2016Q3

REPORT INFORMATION
  Report Type: Spontaneous
  Country: US (occurrence: US)
  Receive Date: 20160718
  Receipt Date: 20160718
  Transmission Date: 20161109
  Serious: Yes (Other)
  Sender: FDA-Public Use
  Company Number: US-SHIRE-2016DX000235

PATIENT
  Age: 33 Year
  Sex: Female

DRUGS (2)
  1. KALBITOR [Suspect]
     Active Substance: ECALLANTIDE
     Indication: HEREDITARY ANGIOEDEMA
     Route: 058
     Dates: start: 20160707, end: 20160707
  2. KALBITOR [Suspect]
     Active Substance: ECALLANTIDE
     Route: 058
     Dates: start: 20160202

REACTIONS (1)
  - Anaphylactic reaction [Recovered/Resolved]

NARRATIVE: CASE EVENT DATE: 20160707
